FAERS Safety Report 12432118 (Version 1)
Quarter: 2016Q2

REPORT INFORMATION
  Report Type: Spontaneous
  Country: US (occurrence: None)
  Receive Date: 20160602
  Receipt Date: 20160602
  Transmission Date: 20160815
  Serious: Yes (Hospitalization)
  Sender: FDA-Public Use
  Company Number: None

PATIENT
  Age: 62 Year
  Sex: Male
  Weight: 79.38 kg

DRUGS (1)
  1. ADVAIR DISKUS [Suspect]
     Active Substance: FLUTICASONE PROPIONATE\SALMETEROL XINAFOATE
     Indication: MULTIPLE ALLERGIES
     Dosage: 60 PUFF(S) TWICE A DAY TAKEN BY MOUTH
     Route: 048

REACTIONS (6)
  - Pyrexia [None]
  - Asthenia [None]
  - Electrocardiogram abnormal [None]
  - Dyspnoea [None]
  - Headache [None]
  - Chills [None]

NARRATIVE: CASE EVENT DATE: 20160409
